FAERS Safety Report 4765277-1 (Version None)
Quarter: 2005Q3

REPORT INFORMATION
  Report Type: 
  Country: None (occurrence: None)
  Receive Date: 20050906
  Receipt Date: 20050823
  Transmission Date: 20060218
  Serious: Yes (Other)
  Sender: FDA-Public Use
  Company Number: 2005117284

PATIENT
  Age: 65 Year
  Sex: Male

DRUGS (2)
  1. VFEND [Suspect]
     Indication: BRONCHOPULMONARY ASPERGILLOSIS
     Dosage: 500 MG, INTRAVENOUS
     Route: 042
     Dates: start: 20050805
  2. EUGLUCON (GLIBENCLAMIDE) [Suspect]
     Indication: DIABETES MELLITUS
     Dosage: 2.5 GRAM, ORAL
     Route: 048
     Dates: start: 20041001, end: 20050801

REACTIONS (2)
  - DRUG INTERACTION [None]
  - HYPOGLYCAEMIA [None]
